FAERS Safety Report 13499074 (Version 1)
Quarter: 2017Q2

REPORT INFORMATION
  Report Type: Spontaneous
  Country: US (occurrence: US)
  Receive Date: 20170501
  Receipt Date: 20170501
  Transmission Date: 20170830
  Serious: No
  Sender: FDA-Public Use
  Company Number: US-009507513-1704USA009136

PATIENT
  Age: 25 Year
  Sex: Female
  Weight: 68.03 kg

DRUGS (2)
  1. NEXPLANON [Suspect]
     Active Substance: ETONOGESTREL
     Indication: CONTRACEPTION
     Dosage: 3 YEAR IMPLANT INSIDE THE LEFT ARM
     Route: 059
  2. ISONIAZID. [Concomitant]
     Active Substance: ISONIAZID
     Dosage: UNKNOWN

REACTIONS (1)
  - Menometrorrhagia [Unknown]
